FAERS Safety Report 18854006 (Version 1)
Quarter: 2021Q1

REPORT INFORMATION
  Report Type: Spontaneous
  Country: IT (occurrence: IT)
  Receive Date: 20210205
  Receipt Date: 20210205
  Transmission Date: 20210420
  Serious: Yes (Hospitalization)
  Sender: FDA-Public Use
  Company Number: IT-JNJFOC-20210205333

PATIENT
  Age: 74 Year
  Sex: Female

DRUGS (12)
  1. RIOPAN [PIROXICAM] [Concomitant]
     Active Substance: PIROXICAM
  2. MINIAS [Concomitant]
     Active Substance: LORMETAZEPAM
  3. DIHYDROCODEINE [Concomitant]
     Active Substance: DIHYDROCODEINE
  4. RIVAROXABAN [Suspect]
     Active Substance: RIVAROXABAN
     Indication: ATRIAL FIBRILLATION
     Route: 048
     Dates: start: 20210101, end: 20210117
  5. OLMESARTAN MEDOXOMIL/AMLODIPINA ACCORD [Concomitant]
  6. ROLUFTA [Concomitant]
     Active Substance: UMECLIDINIUM BROMIDE
  7. LENIZAK [Suspect]
     Active Substance: DEXKETOPROFEN\TRAMADOL
     Indication: PAIN
     Route: 048
     Dates: start: 20190101, end: 20210117
  8. QUILOGA [Concomitant]
  9. DILATREND [Concomitant]
     Active Substance: CARVEDILOL
  10. PANTOPRAZOLE [Concomitant]
     Active Substance: PANTOPRAZOLE
     Route: 048
  11. CIPRALEX [Concomitant]
     Active Substance: ESCITALOPRAM OXALATE
  12. ISOSORBIDE MONONITRATE. [Concomitant]
     Active Substance: ISOSORBIDE MONONITRATE

REACTIONS (2)
  - Hyperaemia [Recovered/Resolved]
  - Iron deficiency anaemia [Recovered/Resolved]

NARRATIVE: CASE EVENT DATE: 20210113
